FAERS Safety Report 20606069 (Version 1)
Quarter: 2022Q1

REPORT INFORMATION
  Report Type: Spontaneous
  Country: US (occurrence: None)
  Receive Date: 20220316
  Receipt Date: 20220316
  Transmission Date: 20220423
  Serious: Yes (Death)
  Sender: FDA-Public Use
  Company Number: None

PATIENT
  Sex: Male
  Weight: 127.01 kg

DRUGS (10)
  1. BRAFTOVI [Suspect]
     Active Substance: ENCORAFENIB
     Indication: Product used for unknown indication
     Dosage: FREQUENCY : DAILY;?
     Route: 048
  2. MEKTOVI [Suspect]
     Active Substance: BINIMETINIB
     Indication: Product used for unknown indication
     Dosage: FREQUENCY : TWICE A DAY;?
     Route: 048
  3. MORPHINE SULFATE [Concomitant]
     Active Substance: MORPHINE SULFATE
  4. BUSPIRONE [Concomitant]
     Active Substance: BUSPIRONE HYDROCHLORIDE
  5. OMEPRAZOLE [Concomitant]
     Active Substance: OMEPRAZOLE
  6. ACETAMINOPHEN\OXYCODONE HYDROCHLORIDE [Concomitant]
     Active Substance: ACETAMINOPHEN\OXYCODONE HYDROCHLORIDE
  7. SIMVASTATIN [Concomitant]
     Active Substance: SIMVASTATIN
  8. NAPROXEN [Concomitant]
     Active Substance: NAPROXEN
  9. LISINOPRIL [Concomitant]
     Active Substance: LISINOPRIL
  10. COLACE [Concomitant]
     Active Substance: DOCUSATE SODIUM

REACTIONS (1)
  - Death [None]
